FAERS Safety Report 5412466-9 (Version None)
Quarter: 2007Q3

REPORT INFORMATION
  Report Type: 
  Country: None (occurrence: None)
  Receive Date: 20070713
  Receipt Date: 20070516
  Transmission Date: 20080115
  Serious: Yes (Hospitalization)
  Sender: FDA-Public Use
  Company Number: US-JNJFOC-20061000754

PATIENT
  Age: 27 Year
  Sex: Female
  Weight: 99.7913 kg

DRUGS (2)
  1. ORTHO EVRA [Suspect]
     Indication: MENSTRUATION IRREGULAR
     Dosage: TRANSDERMAL
     Route: 062
     Dates: start: 20050601, end: 20050922
  2. PREDNISONE TAB [Concomitant]

REACTIONS (2)
  - OFF LABEL USE [None]
  - PULMONARY EMBOLISM [None]
